FAERS Safety Report 12857416 (Version 3)
Quarter: 2016Q4

REPORT INFORMATION
  Report Type: Spontaneous
  Country: GB (occurrence: GB)
  Receive Date: 20161018
  Receipt Date: 20161220
  Transmission Date: 20170207
  Serious: Yes (Other)
  Sender: FDA-Public Use
  Company Number: GB-PFIZER INC-2016479944

PATIENT
  Sex: Female

DRUGS (1)
  1. LYRICA [Suspect]
     Active Substance: PREGABALIN
     Indication: ANXIETY
     Dosage: 75 MG, 2X/DAY
     Dates: start: 20160523, end: 20160618

REACTIONS (14)
  - Mental impairment [Recovered/Resolved]
  - Stress [Recovered/Resolved]
  - Product quality issue [Unknown]
  - Malaise [Recovered/Resolved]
  - Abnormal loss of weight [Recovered/Resolved]
  - Palpitations [Recovered/Resolved]
  - Speech disorder [Recovered/Resolved]
  - Syncope [Unknown]
  - Dizziness [Recovered/Resolved]
  - Paranoia [Recovered/Resolved]
  - Abasia [Recovered/Resolved]
  - Muscle spasms [Recovered/Resolved]
  - Panic attack [Recovered/Resolved]
  - Tinnitus [Not Recovered/Not Resolved]

NARRATIVE: CASE EVENT DATE: 20160523
